FAERS Safety Report 25145248 (Version 2)
Quarter: 2025Q2

REPORT INFORMATION
  Report Type: Spontaneous
  Country: US (occurrence: US)
  Receive Date: 20250401
  Receipt Date: 20250526
  Transmission Date: 20250716
  Serious: Yes (Hospitalization)
  Sender: CSL BEHRING
  Company Number: US-BEH-2025200417

PATIENT
  Sex: Female

DRUGS (1)
  1. ZEMAIRA [Suspect]
     Active Substance: .ALPHA.1-PROTEINASE INHIBITOR HUMAN
     Indication: Alpha-1 antitrypsin deficiency
     Dosage: 3978 MG, QW
     Route: 042
     Dates: start: 202112

REACTIONS (5)
  - Hypoxia [Unknown]
  - Lower respiratory tract infection [Recovering/Resolving]
  - Respiratory tract infection [Unknown]
  - Alpha-1 antitrypsin deficiency [Unknown]
  - Laryngitis [Recovering/Resolving]
